FAERS Safety Report 9702363 (Version 1)
Quarter: 2013Q4

REPORT INFORMATION
  Report Type: Spontaneous
  Country: CA (occurrence: CA)
  Receive Date: 20131121
  Receipt Date: 20131121
  Transmission Date: 20140711
  Serious: Yes (Other)
  Sender: FDA-Public Use
  Company Number: CA-PFIZER INC-2013331365

PATIENT
  Age: 37 Year
  Sex: Male

DRUGS (4)
  1. LIPITOR [Suspect]
     Dosage: 80 MG, UNK
  2. LIPITOR [Suspect]
     Dosage: 40 MG, UNK
  3. LIPITOR [Suspect]
     Dosage: 20 MG, UNK
  4. LIPITOR [Suspect]
     Dosage: 10 MG, UNK

REACTIONS (2)
  - Transient ischaemic attack [Unknown]
  - Feeling abnormal [Recovered/Resolved]
